FAERS Safety Report 21882616 (Version 3)
Quarter: 2023Q1

REPORT INFORMATION
  Report Type: Report from Study
  Country: MX (occurrence: MX)
  Receive Date: 20230119
  Receipt Date: 20230223
  Transmission Date: 20230418
  Serious: Yes (Hospitalization, Other)
  Sender: FDA-Public Use
  Company Number: MX-ABBVIE-4244870

PATIENT
  Age: 76 Year
  Sex: Male
  Weight: 72 kg

DRUGS (2)
  1. IBRUTINIB [Suspect]
     Active Substance: IBRUTINIB
     Indication: Chronic lymphocytic leukaemia
     Route: 048
  2. VENCLEXTA [Suspect]
     Active Substance: VENETOCLAX
     Indication: Chronic lymphocytic leukaemia
     Route: 048
     Dates: start: 20221130, end: 20230103

REACTIONS (9)
  - Prostatic operation [Recovering/Resolving]
  - Drug ineffective [Unknown]
  - Urinary tract infection [Recovering/Resolving]
  - Shock [Recovered/Resolved]
  - Prostatic disorder [Unknown]
  - Fluid retention [Unknown]
  - Urinary retention [Unknown]
  - White blood cell count decreased [Recovering/Resolving]
  - Haemorrhage [Recovered/Resolved]

NARRATIVE: CASE EVENT DATE: 20221215
